FAERS Safety Report 16000584 (Version 1)
Quarter: 2019Q1

REPORT INFORMATION
  Report Type: Spontaneous
  Country: US (occurrence: US)
  Receive Date: 20190225
  Receipt Date: 20190225
  Transmission Date: 20190418
  Serious: No
  Sender: FDA-Public Use
  Company Number: US-TEVA-2019-US-1006402

PATIENT
  Age: 66 Year
  Sex: Female

DRUGS (1)
  1. TRAZODONE HYDROCHLORIDE,150 MG [Suspect]
     Active Substance: TRAZODONE HYDROCHLORIDE
     Route: 048

REACTIONS (4)
  - Product use complaint [Unknown]
  - Wrong technique in product usage process [None]
  - Injury [Unknown]
  - Product shape issue [None]

NARRATIVE: CASE EVENT DATE: 20190127
